FAERS Safety Report 19972823 (Version 1)
Quarter: 2021Q4

REPORT INFORMATION
  Report Type: Spontaneous
  Country: RO (occurrence: RO)
  Receive Date: 20211020
  Receipt Date: 20211020
  Transmission Date: 20220303
  Serious: Yes (Other)
  Sender: FDA-Public Use
  Company Number: RO-AMGEN-ROUSP2021159811

PATIENT
  Age: 46 Year
  Sex: Female
  Weight: 83 kg

DRUGS (6)
  1. VECTIBIX [Suspect]
     Active Substance: PANITUMUMAB
     Indication: Product used for unknown indication
     Dosage: UNK (14 DAYS)
     Route: 042
     Dates: start: 201704, end: 201712
  2. LEUCOVORIN [Suspect]
     Active Substance: LEUCOVORIN
     Indication: Product used for unknown indication
     Dosage: UNK, 14 DAYS
     Route: 042
     Dates: start: 201704, end: 201712
  3. FLUOROURACIL [Suspect]
     Active Substance: FLUOROURACIL
     Indication: Product used for unknown indication
     Dosage: UNK, 14 DAYS
     Route: 042
     Dates: start: 201704, end: 201712
  4. OXALIPLATIN [Suspect]
     Active Substance: OXALIPLATIN
     Indication: Product used for unknown indication
     Dosage: UNK, 14 DAYS
     Route: 042
     Dates: start: 201704, end: 201712
  5. IRINOTECAN [Suspect]
     Active Substance: IRINOTECAN
     Indication: Product used for unknown indication
     Dosage: UNK
     Route: 065
     Dates: start: 201712
  6. AFLIBERCEPT [Suspect]
     Active Substance: AFLIBERCEPT
     Indication: Product used for unknown indication
     Dosage: UNK
     Route: 065
     Dates: start: 201712

REACTIONS (4)
  - Metastases to lung [Unknown]
  - Metastases to liver [Unknown]
  - Disease progression [Unknown]
  - Skin toxicity [Unknown]

NARRATIVE: CASE EVENT DATE: 20170101
